FAERS Safety Report 13090061 (Version 4)
Quarter: 2017Q1

REPORT INFORMATION
  Report Type: Spontaneous
  Country: IT (occurrence: IT)
  Receive Date: 20170105
  Receipt Date: 20170131
  Transmission Date: 20170428
  Serious: Yes (Other)
  Sender: FDA-Public Use
  Company Number: IT-TEVA-725801ISR

PATIENT
  Age: 57 Year
  Sex: Male

DRUGS (7)
  1. BENDAMUSTINE [Suspect]
     Active Substance: BENDAMUSTINE
     Indication: B-CELL LYMPHOMA
     Dosage: TWO CYCLES OF 90 MG/M2
     Route: 065
     Dates: start: 20120101
  2. RITUXIMAB [Suspect]
     Active Substance: RITUXIMAB
     Indication: B-CELL LYMPHOMA
     Dosage: FOUR CYCLES OF R-CHOP REGIMEN
     Route: 065
     Dates: start: 20120101
  3. VINCRISTINE [Suspect]
     Active Substance: VINCRISTINE
     Indication: B-CELL LYMPHOMA
     Dosage: FOUR CYCLES OF R-CHOP REGIMEN
     Route: 065
     Dates: start: 20120101
  4. ADRIAMYCIN [Suspect]
     Active Substance: DOXORUBICIN HYDROCHLORIDE
     Indication: B-CELL LYMPHOMA
     Dosage: FOUR CYCLES OF R-CHOP REGIMEN
     Route: 065
     Dates: start: 20120101
  5. CYCLOPHOSPHAMIDE. [Suspect]
     Active Substance: CYCLOPHOSPHAMIDE
     Indication: B-CELL LYMPHOMA
     Dosage: FOUR CYCLES OF R-CHOP REGIMEN
     Route: 065
     Dates: start: 20120101
  6. PREDNISONE. [Suspect]
     Active Substance: PREDNISONE
     Indication: B-CELL LYMPHOMA
     Dosage: FOUR CYCLES OF R-CHOP REGIMEN
     Route: 065
     Dates: start: 20120101
  7. RITUXIMAB [Suspect]
     Active Substance: RITUXIMAB
     Dosage: TWO CYCLES
     Route: 065
     Dates: start: 20120510

REACTIONS (2)
  - Osteonecrosis of jaw [Recovering/Resolving]
  - Sphingomonas paucimobilis infection [Recovering/Resolving]
